FAERS Safety Report 13963393 (Version 1)
Quarter: 2017Q3

REPORT INFORMATION
  Report Type: Spontaneous
  Country: NO (occurrence: NO)
  Receive Date: 20170913
  Receipt Date: 20170913
  Transmission Date: 20171128
  Serious: Yes (Death, Other)
  Sender: FDA-Public Use
  Company Number: NO-AXELLIA-001173

PATIENT
  Age: 82 Year
  Sex: Female

DRUGS (14)
  1. ALBYL-E [Concomitant]
     Active Substance: ASPIRIN\MAGNESIUM OXIDE
  2. ZOFRAN [Concomitant]
     Active Substance: ONDANSETRON HYDROCHLORIDE
  3. SAROTEX [Concomitant]
     Active Substance: AMITRIPTYLINE HYDROCHLORIDE
  4. AMPICILLIN [Suspect]
     Active Substance: AMPICILLIN
     Indication: HIP ARTHROPLASTY
     Dates: start: 2017, end: 2017
  5. MYCOSTATIN [Concomitant]
     Active Substance: NYSTATIN
  6. SOMAC [Concomitant]
     Active Substance: PANTOPRAZOLE SODIUM
  7. METOPROLOL. [Concomitant]
     Active Substance: METOPROLOL
  8. LIPITOR [Concomitant]
     Active Substance: ATORVASTATIN CALCIUM
  9. LANTUS [Concomitant]
     Active Substance: INSULIN GLARGINE
  10. VANCOMYCIN [Suspect]
     Active Substance: VANCOMYCIN
     Indication: HIP ARTHROPLASTY
     Dates: start: 2017, end: 2017
  11. ELIQUIS [Concomitant]
     Active Substance: APIXABAN
  12. FURIX [Concomitant]
     Active Substance: FUROSEMIDE
  13. HUMALOG [Concomitant]
     Active Substance: INSULIN LISPRO
  14. TARGINIQ ER [Concomitant]
     Active Substance: NALOXONE HYDROCHLORIDE\OXYCODONE HYDROCHLORIDE

REACTIONS (3)
  - Renal failure [Unknown]
  - Bone marrow failure [Fatal]
  - Lactic acidosis [Fatal]

NARRATIVE: CASE EVENT DATE: 2017
